FAERS Safety Report 7731903-8 (Version None)
Quarter: 2011Q3

REPORT INFORMATION
  Report Type: 
  Country: None (occurrence: None)
  Receive Date: 20110906
  Receipt Date: 20110713
  Transmission Date: 20111222
  Serious: No
  Sender: FDA-Public Use
  Company Number: US-AMGEN-USASP2011035649

PATIENT
  Age: 83 Year
  Sex: Female

DRUGS (8)
  1. ASPIRIN [Concomitant]
     Dosage: 1 MG, QD
  2. SULAR [Concomitant]
     Dosage: 1 MG, QD
  3. ZYRTEC [Concomitant]
     Indication: HYPERSENSITIVITY
     Dosage: UNK
  4. LEVOXYL [Concomitant]
     Dosage: 1 MG, QD
  5. TYLENOL (CAPLET) [Concomitant]
     Indication: PAIN
     Dosage: UNK MG, UNK
  6. VITAMIN D [Concomitant]
     Dosage: UNK
  7. PROLIA [Suspect]
     Indication: OSTEOPOROSIS POSTMENOPAUSAL
     Dosage: 60 MG, Q6MO
     Dates: start: 20110101
  8. CALCIUM CARBONATE [Concomitant]
     Dosage: UNK

REACTIONS (6)
  - HYPOAESTHESIA [None]
  - PARAESTHESIA [None]
  - ASTHENIA [None]
  - IMMUNE SYSTEM DISORDER [None]
  - PAIN IN EXTREMITY [None]
  - BURNING SENSATION [None]
